FAERS Safety Report 5383350-4 (Version None)
Quarter: 2007Q3

REPORT INFORMATION
  Report Type: 
  Country: None (occurrence: None)
  Receive Date: 20070710
  Receipt Date: 20070628
  Transmission Date: 20080115
  Serious: Yes (Other)
  Sender: FDA-Public Use
  Company Number: CH-ELI_LILLY_AND_COMPANY-CH200706000379

PATIENT
  Age: 63 Year
  Sex: Female

DRUGS (1)
  1. FLUCTINE [Suspect]
     Indication: DEPRESSION
     Dosage: UNK, UNKNOWN
     Route: 065
     Dates: start: 20040101

REACTIONS (1)
  - AORTIC DILATATION [None]
